FAERS Safety Report 13734841 (Version 1)
Quarter: 2017Q3

REPORT INFORMATION
  Report Type: Report from Study
  Country: None (occurrence: US)
  Receive Date: 20170710
  Receipt Date: 20170710
  Transmission Date: 20171127
  Serious: Yes (Other)
  Sender: FDA-Public Use
  Company Number: US-ABBVIE-17K-163-2031475-00

PATIENT
  Sex: Male

DRUGS (1)
  1. HUMIRA [Suspect]
     Active Substance: ADALIMUMAB
     Indication: CROHN^S DISEASE
     Route: 058

REACTIONS (5)
  - Dyschezia [Unknown]
  - Therapeutic response shortened [Unknown]
  - Gastrointestinal haemorrhage [Unknown]
  - Frequent bowel movements [Unknown]
  - Acrochordon [Unknown]

NARRATIVE: CASE EVENT DATE: 2017
